FAERS Safety Report 6723431-3 (Version None)
Quarter: 2010Q2

REPORT INFORMATION
  Report Type: 
  Country: None (occurrence: None)
  Receive Date: 20100513
  Receipt Date: 20100504
  Transmission Date: 20101027
  Serious: Yes (Other)
  Sender: FDA-Public Use
  Company Number: PHHY2010BR28804

PATIENT
  Sex: Female
  Weight: 81 kg

DRUGS (1)
  1. FORASEQ [Suspect]
     Indication: ASTHMA
     Dosage: UNK

REACTIONS (4)
  - AGITATION [None]
  - HEARING AID USER [None]
  - HEARING IMPAIRED [None]
  - MEMORY IMPAIRMENT [None]
